FAERS Safety Report 5264245-3 (Version None)
Quarter: 2007Q1

REPORT INFORMATION
  Report Type: 
  Country: None (occurrence: None)
  Receive Date: 20070313
  Receipt Date: 20070305
  Transmission Date: 20070707
  Serious: Yes (Other)
  Sender: FDA-Public Use
  Company Number: US-PFIZER INC-2007017225

PATIENT
  Sex: Male
  Weight: 68 kg

DRUGS (5)
  1. XALATAN [Suspect]
     Indication: GLAUCOMA
     Dosage: TEXT:0.005%; 0.005%
     Route: 047
  2. ZOCOR [Concomitant]
  3. CARDURA [Concomitant]
  4. ALPHAGAN [Concomitant]
  5. LEVOBUNOLOL [Concomitant]

REACTIONS (2)
  - DIABETES MELLITUS [None]
  - DIZZINESS [None]
